FAERS Safety Report 8906548 (Version 1)
Quarter: 2012Q4

REPORT INFORMATION
  Report Type: 
  Country: US (occurrence: US)
  Receive Date: 20121114
  Receipt Date: 20121114
  Transmission Date: 20130627
  Serious: No
  Sender: FDA-Public Use
  Company Number: US-009507513-1210USA013367

PATIENT
  Sex: Female

DRUGS (11)
  1. VICTRELIS [Suspect]
     Dosage: 800 mg, q8h
     Route: 048
  2. ORABASE [Concomitant]
     Dosage: 20%
  3. PROCRIT [Concomitant]
     Dosage: 40000/ML
  4. METFORMIN [Concomitant]
     Dosage: 500 MG
     Route: 048
  5. AMLODIPINE [Concomitant]
     Dosage: 2.5 MG
     Route: 048
  6. HYDROCHLOROT [Concomitant]
     Dosage: 12.5 MG
     Route: 048
  7. LEVOTHYROXINE SODIUM [Concomitant]
     Dosage: 25 Microgam
     Route: 048
  8. NADOLOL [Concomitant]
     Dosage: 20 MG
     Route: 048
  9. CALCIUM (UNSPECIFIED) [Concomitant]
     Dosage: 500
     Route: 048
  10. BACTRIM [Concomitant]
     Dosage: 400-80 MG
     Route: 048
  11. NEUPOGEN [Concomitant]
     Dosage: 300/0.5

REACTIONS (1)
  - White blood cell count decreased [Unknown]
